FAERS Safety Report 16352361 (Version 2)
Quarter: 2019Q2

REPORT INFORMATION
  Report Type: Spontaneous
  Country: JP (occurrence: JP)
  Receive Date: 20190524
  Receipt Date: 20190527
  Transmission Date: 20190711
  Serious: Yes (Death)
  Sender: FDA-Public Use
  Company Number: JP-ROCHE-2322356

PATIENT
  Age: 73 Year
  Sex: Male

DRUGS (12)
  1. OXALIPLATIN. [Concomitant]
     Active Substance: OXALIPLATIN
     Indication: OFF LABEL USE
  2. OXALIPLATIN. [Concomitant]
     Active Substance: OXALIPLATIN
     Indication: MIXED ADENONEUROENDOCRINE CARCINOMA
  3. IRINOTECAN HYDROCHLORIDE. [Concomitant]
     Active Substance: IRINOTECAN HYDROCHLORIDE
     Indication: OFF LABEL USE
  4. LEVOFOLINATE DE CALCIUM [Concomitant]
     Active Substance: LEVOLEUCOVORIN CALCIUM
     Indication: OFF LABEL USE
  5. XELODA [Suspect]
     Active Substance: CAPECITABINE
     Indication: OFF LABEL USE
  6. IRINOTECAN HYDROCHLORIDE. [Concomitant]
     Active Substance: IRINOTECAN HYDROCHLORIDE
     Indication: MIXED ADENONEUROENDOCRINE CARCINOMA
     Dosage: DOSAGE IS UNCERTAIN.
     Route: 041
  7. AVASTIN [Suspect]
     Active Substance: BEVACIZUMAB
     Indication: MIXED ADENONEUROENDOCRINE CARCINOMA
     Route: 042
  8. FLUOROURACIL. [Concomitant]
     Active Substance: FLUOROURACIL
     Indication: MIXED ADENONEUROENDOCRINE CARCINOMA
     Dosage: DOSAGE IS UNCERTAIN.
     Route: 040
  9. XELODA [Suspect]
     Active Substance: CAPECITABINE
     Indication: MIXED ADENONEUROENDOCRINE CARCINOMA
     Route: 048
  10. FLUOROURACIL. [Concomitant]
     Active Substance: FLUOROURACIL
     Indication: OFF LABEL USE
     Dosage: DOSAGE IS UNCERTAIN.
     Route: 041
  11. AVASTIN [Suspect]
     Active Substance: BEVACIZUMAB
     Indication: OFF LABEL USE
  12. LEVOFOLINATE DE CALCIUM [Concomitant]
     Active Substance: LEVOLEUCOVORIN CALCIUM
     Indication: MIXED ADENONEUROENDOCRINE CARCINOMA
     Dosage: DOSAGE IS UNCERTAIN.
     Route: 041

REACTIONS (3)
  - Disease progression [Fatal]
  - Off label use [Unknown]
  - Intentional product use issue [Unknown]
